FAERS Safety Report 13901685 (Version 2)
Quarter: 2017Q3

REPORT INFORMATION
  Report Type: Spontaneous
  Country: IT (occurrence: IT)
  Receive Date: 20170824
  Receipt Date: 20170912
  Transmission Date: 20171127
  Serious: Yes (Other)
  Sender: FDA-Public Use
  Company Number: IT-ROCHE-1980909

PATIENT
  Age: 9 Year
  Sex: Male

DRUGS (3)
  1. UNASYN (ITALY) [Concomitant]
     Active Substance: SULTAMICILLIN
     Indication: PROPHYLAXIS
     Dosage: 1 VIAL OF POWDER 3 G PERIOD : 7 DAYS
     Route: 040
     Dates: start: 20170814
  2. PERFALGAN [Concomitant]
     Active Substance: ACETAMINOPHEN
     Indication: PAIN
     Dosage: PERIOD : 3 DAYS
     Route: 041
     Dates: start: 20170814
  3. DIAZEPAM. [Suspect]
     Active Substance: DIAZEPAM
     Indication: EPILEPSY
     Dosage: AS REQUIRED
     Route: 054
     Dates: start: 20170815, end: 20170815

REACTIONS (1)
  - Lip oedema [Recovered/Resolved]

NARRATIVE: CASE EVENT DATE: 20170815
